FAERS Safety Report 13715239 (Version 1)
Quarter: 2017Q3

REPORT INFORMATION
  Report Type: Spontaneous
  Country: IL (occurrence: IL)
  Receive Date: 20170704
  Receipt Date: 20170704
  Transmission Date: 20171127
  Serious: Yes (Other)
  Sender: FDA-Public Use
  Company Number: PHHY2017IL096129

PATIENT
  Age: 58 Year
  Sex: Female

DRUGS (1)
  1. ZOLEDRONATE [Suspect]
     Active Substance: ZOLEDRONIC ACID
     Indication: OSTEOPOROSIS
     Dosage: UNK
     Route: 042

REACTIONS (4)
  - Influenza like illness [Unknown]
  - Arthralgia [Unknown]
  - Immune-mediated adverse reaction [Unknown]
  - Erythema [Unknown]
